FAERS Safety Report 9856287 (Version 4)
Quarter: 2014Q1

REPORT INFORMATION
  Report Type: Spontaneous
  Country: IL (occurrence: IL)
  Receive Date: 20140130
  Receipt Date: 20140224
  Transmission Date: 20141002
  Serious: Yes (Hospitalization)
  Sender: FDA-Public Use
  Company Number: IL-009507513-1401ISR012218

PATIENT
  Age: 29 Year
  Sex: Female

DRUGS (1)
  1. TEMODAL [Suspect]
     Indication: GLIOBLASTOMA
     Dosage: VIA PEG TUBE
     Route: 050
     Dates: start: 201401

REACTIONS (4)
  - Gastrostomy [Unknown]
  - Dysphagia [Not Recovered/Not Resolved]
  - Incorrect route of drug administration [Unknown]
  - Wrong technique in drug usage process [Unknown]
